FAERS Safety Report 9480449 (Version 1)
Quarter: 2013Q3

REPORT INFORMATION
  Report Type: Spontaneous
  Country: US (occurrence: US)
  Receive Date: 20130828
  Receipt Date: 20130828
  Transmission Date: 20140515
  Serious: Yes (Other)
  Sender: FDA-Public Use
  Company Number: US-AMGEN-KDL102936

PATIENT
  Age: 66 Year
  Sex: Female

DRUGS (7)
  1. ENBREL [Suspect]
     Indication: RHEUMATOID ARTHRITIS
     Dosage: 25 MG, 2 TIMES/WK
     Route: 058
     Dates: start: 19991231, end: 200411
  2. ESTROGENS CONJUGATED [Concomitant]
     Dosage: UNK UNK, UNK
  3. POTASSIUM CHLORIDE [Concomitant]
     Dosage: UNK UNK, UNK
  4. OMEPRAZOLE [Concomitant]
     Dosage: UNK UNK, UNK
  5. OS-CAL [Concomitant]
     Dosage: UNK UNK, UNK
  6. MELOXICAM [Concomitant]
     Dosage: UNK UNK, UNK
  7. TRIAMTERENE/HYDROCHLOROTHIAZIDE [Concomitant]
     Dosage: UNK UNK, UNK

REACTIONS (2)
  - Pulmonary tuberculosis [Not Recovered/Not Resolved]
  - Pulmonary mass [Unknown]
